FAERS Safety Report 21492006 (Version 5)
Quarter: 2022Q4

REPORT INFORMATION
  Report Type: Spontaneous
  Country: JP (occurrence: JP)
  Receive Date: 20221021
  Receipt Date: 20221228
  Transmission Date: 20230112
  Serious: Yes (Hospitalization)
  Sender: FDA-Public Use
  Company Number: JP-GSKNCCC-Case-01592988_AE-63351

PATIENT

DRUGS (4)
  1. VALTREX [Suspect]
     Active Substance: VALACYCLOVIR HYDROCHLORIDE
     Indication: Herpes zoster
     Dosage: 1000 MG, TID
     Route: 048
     Dates: start: 20220920, end: 20220926
  2. LOXOPROFEN SODIUM [Concomitant]
     Active Substance: LOXOPROFEN SODIUM
     Indication: Herpes zoster
     Dosage: 60 MG, TID
     Route: 048
     Dates: start: 20220920, end: 20220926
  3. METHYLCOBALAMIN [Concomitant]
     Active Substance: METHYLCOBALAMIN
     Indication: Herpes zoster
     Dosage: 0.5 MG, TID
     Route: 048
     Dates: start: 20220920, end: 20220926
  4. REBAMIPIDE [Concomitant]
     Active Substance: REBAMIPIDE
     Indication: Herpes zoster
     Dosage: 100 MG, TID
     Route: 048
     Dates: start: 20220920, end: 20220926

REACTIONS (5)
  - Dizziness [Recovering/Resolving]
  - Vomiting [Recovering/Resolving]
  - Balance disorder [Recovering/Resolving]
  - Nausea [Recovering/Resolving]
  - Hypophagia [Recovered/Resolved]

NARRATIVE: CASE EVENT DATE: 20221008
